FAERS Safety Report 16812690 (Version 2)
Quarter: 2020Q2

REPORT INFORMATION
  Report Type: Report from Study
  Country: CA (occurrence: CA)
  Receive Date: 20190916
  Receipt Date: 20200609
  Transmission Date: 20200713
  Serious: Yes (Other)
  Sender: FDA-Public Use
  Company Number: PHHY2018CA014345

PATIENT
  Age: 41 Year
  Sex: Female

DRUGS (6)
  1. COSENTYX [Suspect]
     Active Substance: SECUKINUMAB
     Dosage: UNK
     Route: 058
     Dates: start: 20180530
  2. COSENTYX [Suspect]
     Active Substance: SECUKINUMAB
     Dosage: 150 MG, QMO
     Route: 058
     Dates: start: 20190525
  3. COSENTYX [Suspect]
     Active Substance: SECUKINUMAB
     Dosage: 300 MG, QMO
     Route: 058
     Dates: start: 2019, end: 20200511
  4. IBUPROFEN. [Concomitant]
     Active Substance: IBUPROFEN
     Indication: PRODUCT USED FOR UNKNOWN INDICATION
     Dosage: UNK UNK, PRN
     Route: 048
  5. COSENTYX [Suspect]
     Active Substance: SECUKINUMAB
     Indication: ANKYLOSING SPONDYLITIS
     Dosage: 150 MG, QW
     Route: 058
     Dates: start: 20180523
  6. PREDNISONE. [Concomitant]
     Active Substance: PREDNISONE
     Indication: CONDITION AGGRAVATED
     Dosage: 1 DF (50MG-5MG), QD(TAPPERIN DOSE)
     Route: 065
     Dates: start: 201712, end: 20180410

REACTIONS (8)
  - Fatigue [Unknown]
  - Pneumonia [Recovering/Resolving]
  - Device malfunction [Unknown]
  - Sinusitis [Unknown]
  - Drug ineffective [Unknown]
  - Tooth infection [Unknown]
  - Oesophageal candidiasis [Unknown]
  - Candida infection [Unknown]

NARRATIVE: CASE EVENT DATE: 20180530
